FAERS Safety Report 13753520 (Version 1)
Quarter: 2017Q3

REPORT INFORMATION
  Report Type: Spontaneous
  Country: US (occurrence: US)
  Receive Date: 20170714
  Receipt Date: 20170714
  Transmission Date: 20171127
  Serious: No
  Sender: FDA-Public Use
  Company Number: US-TEVA-759438ACC

PATIENT
  Sex: Female

DRUGS (2)
  1. DOXYCYCLINE. [Concomitant]
     Active Substance: DOXYCYCLINE
  2. PROAIR RESPICLICK [Suspect]
     Active Substance: ALBUTEROL SULFATE
     Indication: BRONCHITIS
     Dosage: 0.65G NET CONTENT / 200 METERED INHALATIONS 117MCG^S OF ALBUTEROL, ONE PUFF
     Dates: start: 20170330

REACTIONS (2)
  - Headache [Unknown]
  - Chest pain [Unknown]
